FAERS Safety Report 12947105 (Version 1)
Quarter: 2016Q4

REPORT INFORMATION
  Report Type: Spontaneous
  Country: US (occurrence: US)
  Receive Date: 20161116
  Receipt Date: 20161116
  Transmission Date: 20170207
  Serious: No
  Sender: FDA-Public Use
  Company Number: None

PATIENT
  Age: 76 Year
  Sex: Female
  Weight: 81.27 kg

DRUGS (50)
  1. PREVACID [Concomitant]
     Active Substance: LANSOPRAZOLE
  2. ATENOLOL. [Concomitant]
     Active Substance: ATENOLOL
  3. TRICOR [Concomitant]
     Active Substance: FENOFIBRATE
  4. NULEV [Concomitant]
     Active Substance: HYOSCYAMINE SULFATE
  5. DOCUSATE SODIUM. [Concomitant]
     Active Substance: DOCUSATE SODIUM
  6. METAMUCIL [Concomitant]
     Active Substance: PLANTAGO SEED
  7. PROBIOTIC MULTI REFRESH [Concomitant]
  8. ELAVIL [Concomitant]
     Active Substance: AMITRIPTYLINE HYDROCHLORIDE
  9. NIASPAN ER [Concomitant]
     Active Substance: NIACIN
  10. VICODIN [Concomitant]
     Active Substance: ACETAMINOPHEN\HYDROCODONE BITARTRATE
  11. FLUOCINOLONE [Concomitant]
     Active Substance: FLUOCINOLONE
  12. SYNTHROID [Concomitant]
     Active Substance: LEVOTHYROXINE SODIUM
  13. ALPAZOLAM [Concomitant]
     Active Substance: ALPRAZOLAM
  14. CIPRO [Concomitant]
     Active Substance: CIPROFLOXACIN HYDROCHLORIDE
  15. CENTACIL CALCIUM CARBONATE [Concomitant]
  16. SULFA [Concomitant]
     Active Substance: UNSPECIFIED INGREDIENT
  17. PAXIL [Concomitant]
     Active Substance: PAROXETINE HYDROCHLORIDE
  18. PARVACHOL [Concomitant]
  19. TRILIPIX DR [Concomitant]
  20. DOXYCYDINE [Concomitant]
  21. RESTOSIS [Concomitant]
  22. SPIRONOLACTONE TABLET [Suspect]
     Active Substance: SPIRONOLACTONE
     Indication: OEDEMA
     Dosage: 30 PILLS ONCE DAILY BY MOUTH
     Route: 048
     Dates: end: 20161005
  23. VENLAFAXINE [Concomitant]
     Active Substance: VENLAFAXINE HYDROCHLORIDE
  24. LOSARTAN POTASSIUM. [Concomitant]
     Active Substance: LOSARTAN POTASSIUM
  25. CLONAZPAN [Concomitant]
  26. IMIPAMINE [Concomitant]
  27. LEXAPRO [Concomitant]
     Active Substance: ESCITALOPRAM OXALATE
  28. VAPROSYN [Concomitant]
  29. ZYLET [Concomitant]
     Active Substance: LOTEPREDNOL ETABONATE\TOBRAMYCIN
  30. FUROSEMIDE. [Concomitant]
     Active Substance: FUROSEMIDE
  31. TYLENOL [Concomitant]
     Active Substance: ACETAMINOPHEN
  32. TRAZADINE [Concomitant]
  33. PREDNISONE. [Concomitant]
     Active Substance: PREDNISONE
  34. SOMA [Concomitant]
     Active Substance: CARISOPRODOL
  35. LANSOPRAZE DR [Concomitant]
  36. CLEOCIN - CLINDAMYCIN [Concomitant]
  37. PINECILLIAN [Concomitant]
  38. POLYETHYLENE GLYCOL [Concomitant]
     Active Substance: POLYETHYLENE GLYCOLS
  39. MORPHINE [Concomitant]
     Active Substance: MORPHINE
  40. PROPULSID [Concomitant]
     Active Substance: CISAPRIDE
  41. CYMALTA [Concomitant]
  42. FISH OIL [Concomitant]
     Active Substance: FISH OIL
  43. PRILOSEC OMEPRAZOLE [Concomitant]
  44. TOBRADOX [Concomitant]
  45. MURO 128 [Concomitant]
     Active Substance: SODIUM CHLORIDE
  46. SPIRONOLACTONE TABLET [Suspect]
     Active Substance: SPIRONOLACTONE
     Indication: HYPERTENSION
     Dosage: 30 PILLS ONCE DAILY BY MOUTH
     Route: 048
     Dates: end: 20161005
  47. PRINIVIL [Concomitant]
     Active Substance: LISINOPRIL
  48. KENALOG [Concomitant]
     Active Substance: TRIAMCINOLONE ACETONIDE
  49. CORTICOSTEROIDS [Concomitant]
     Active Substance: CORTICOSTEROID NOS
  50. SOOTHE [Concomitant]
     Active Substance: BISMUTH SUBSALICYLATE\GLYCERIN\PROPYLENE GLYCOL

REACTIONS (18)
  - Abdominal distension [None]
  - Breast pain [None]
  - Confusional state [None]
  - Coordination abnormal [None]
  - Headache [None]
  - Myalgia [None]
  - Muscle spasms [None]
  - Heart rate irregular [None]
  - Asthenia [None]
  - Dyspnoea [None]
  - Ear pain [None]
  - Musculoskeletal pain [None]
  - Swelling [None]
  - Neck pain [None]
  - Feeling abnormal [None]
  - Proctalgia [None]
  - Rash [None]
  - Abdominal discomfort [None]

NARRATIVE: CASE EVENT DATE: 201508
